FAERS Safety Report 21215900 (Version 1)
Quarter: 2022Q3

REPORT INFORMATION
  Report Type: Spontaneous
  Country: CA (occurrence: CA)
  Receive Date: 20220816
  Receipt Date: 20220816
  Transmission Date: 20221026
  Serious: Yes (Hospitalization, Other)
  Sender: FDA-Public Use
  Company Number: CA-SAMSUNG BIOEPIS-SB-2022-19643

PATIENT
  Age: 26 Year
  Sex: Female

DRUGS (3)
  1. INFLIXIMAB [Suspect]
     Active Substance: INFLIXIMAB
     Indication: Crohn^s disease
     Route: 042
  2. VEDOLIZUMAB [Concomitant]
     Active Substance: VEDOLIZUMAB
     Indication: Product used for unknown indication
     Dosage: UNKNOWN
     Route: 065
  3. XELJANZ [Concomitant]
     Active Substance: TOFACITINIB CITRATE
     Indication: Crohn^s disease
     Route: 048

REACTIONS (9)
  - COVID-19 [Recovered/Resolved]
  - Cervical friability [Recovered/Resolved]
  - Crohn^s disease [Recovered/Resolved]
  - Disease recurrence [Recovered/Resolved]
  - Frequent bowel movements [Recovered/Resolved]
  - Incontinence [Recovered/Resolved]
  - Ulcer [Recovered/Resolved]
  - Treatment failure [Recovered/Resolved]
  - Off label use [Recovered/Resolved]
